FAERS Safety Report 11979788 (Version 2)
Quarter: 2016Q2

REPORT INFORMATION
  Report Type: Report from Study
  Country: CO (occurrence: CO)
  Receive Date: 20160129
  Receipt Date: 20160422
  Transmission Date: 20160815
  Serious: Yes (Death, Hospitalization)
  Sender: FDA-Public Use
  Company Number: PHHY2015CO173837

PATIENT
  Age: 51 Year
  Sex: Male
  Weight: 58 kg

DRUGS (3)
  1. TASIGNA [Suspect]
     Active Substance: NILOTINIB
     Indication: CHRONIC MYELOID LEUKAEMIA
     Dosage: 100 MG, UNK
     Route: 065
  2. OMEPRAZOLE. [Concomitant]
     Active Substance: OMEPRAZOLE
     Indication: GASTRITIS
     Dosage: 1 OT, QD (DURING FASTING)
     Route: 065
  3. TASIGNA [Suspect]
     Active Substance: NILOTINIB
     Dosage: 2 DF (OF 200 MG), BID (2 IN THE MORNING AND 2 AT NIGHT)
     Route: 048

REACTIONS (6)
  - Chronic myeloid leukaemia recurrent [Recovered/Resolved]
  - Death [Fatal]
  - Movement disorder [Unknown]
  - Immunodeficiency [Unknown]
  - Dizziness [Unknown]
  - Depressed mood [Unknown]

NARRATIVE: CASE EVENT DATE: 20151101
